FAERS Safety Report 21121399 (Version 1)
Quarter: 2022Q3

REPORT INFORMATION
  Report Type: Other
  Country: US (occurrence: None)
  Receive Date: 20220722
  Receipt Date: 20220722
  Transmission Date: 20221026
  Serious: Yes (Other)
  Sender: FDA-Public Use
  Company Number: US-ROCHE-3143432

PATIENT
  Sex: Female

DRUGS (2)
  1. XELODA [Suspect]
     Active Substance: CAPECITABINE
     Indication: Breast cancer female
     Dosage: TAKE 3 TABLETS BY MOUTH IN THE MORNING AND TAKE 2 TABLETS BY MOUTH IN THE EVENING 14 DAYS ON/ 7 7 DA
     Route: 048
  2. XELODA [Suspect]
     Active Substance: CAPECITABINE
     Indication: Bone cancer

REACTIONS (1)
  - Facial paralysis [Unknown]
